FAERS Safety Report 8884079 (Version 1)
Quarter: 2012Q4

REPORT INFORMATION
  Report Type: 
  Country: US (occurrence: US)
  Receive Date: 20121102
  Receipt Date: 20121102
  Transmission Date: 20130627
  Serious: No
  Sender: FDA-Public Use
  Company Number: US-ASTRAZENECA-2012SE28083

PATIENT
  Age: 39 Year
  Sex: Female
  Weight: 60.8 kg

DRUGS (4)
  1. CRESTOR [Suspect]
     Indication: BLOOD CHOLESTEROL
     Route: 048
     Dates: start: 2011
  2. SIMVASTATIN [Concomitant]
  3. IRON [Concomitant]
     Indication: ANAEMIA
  4. ADVIL [Concomitant]
     Indication: PYREXIA

REACTIONS (3)
  - Nasopharyngitis [Unknown]
  - Chest pain [Unknown]
  - Anaemia [Unknown]
